FAERS Safety Report 9003253 (Version 1)
Quarter: 2013Q1

REPORT INFORMATION
  Report Type: Spontaneous
  Country: US (occurrence: US)
  Receive Date: 20130108
  Receipt Date: 20130108
  Transmission Date: 20140127
  Serious: Yes (Other)
  Sender: FDA-Public Use
  Company Number: US-PFIZER INC-2013003214

PATIENT
  Age: 47 Year
  Sex: 0

DRUGS (1)
  1. GLUCOTROL [Suspect]
     Dosage: 5 MG, 2X/DAY
     Route: 048

REACTIONS (1)
  - Asymptomatic HIV infection [Unknown]
